FAERS Safety Report 10079207 (Version 1)
Quarter: 2014Q2

REPORT INFORMATION
  Report Type: Spontaneous
  Country: US (occurrence: None)
  Receive Date: 20140414
  Receipt Date: 20140414
  Transmission Date: 20141212
  Serious: Yes (Death, Life-Threatening, Hospitalization)
  Sender: FDA-Public Use
  Company Number: None

PATIENT
  Age: 75 Year
  Sex: Female

DRUGS (7)
  1. REMICADE [Suspect]
     Indication: PSORIATIC ARTHROPATHY
     Dates: start: 20120710
  2. LEVAQUIN [Concomitant]
  3. ZOFRAN [Concomitant]
  4. OXYCODONE [Concomitant]
  5. SYNTHROID [Concomitant]
  6. FENTANYL [Concomitant]
  7. MAGIC MOUTHWASH [Concomitant]

REACTIONS (5)
  - Head and neck cancer [None]
  - Tongue neoplasm malignant stage unspecified [None]
  - Lymphoma [None]
  - Cerebrovascular accident [None]
  - Convulsion [None]
